FAERS Safety Report 25941398 (Version 1)
Quarter: 2025Q4

REPORT INFORMATION
  Report Type: Spontaneous
  Country: EU (occurrence: EU)
  Receive Date: 20251020
  Receipt Date: 20251020
  Transmission Date: 20260118
  Serious: Yes (Hospitalization)
  Sender: MYLAN
  Company Number: None

PATIENT
  Age: 18 Year
  Sex: Male
  Weight: 76 kg

DRUGS (5)
  1. SERTRALINE [Suspect]
     Active Substance: SERTRALINE HYDROCHLORIDE
     Indication: Product used for unknown indication
     Dosage: UNK,1 TOTAL,(NP)
     Dates: start: 20250912, end: 20250912
  2. OLANZAPINE [Suspect]
     Active Substance: OLANZAPINE
     Indication: Product used for unknown indication
     Dosage: UNK,1 TOTAL,(NP)
     Dates: start: 20250912, end: 20250912
  3. ACETAMINOPHEN [Suspect]
     Active Substance: ACETAMINOPHEN
     Indication: Product used for unknown indication
     Dosage: 23 GRAM, TOTAL,(1 TOTAL)
     Dates: start: 20250912, end: 20250912
  4. LOXAPINE [Suspect]
     Active Substance: LOXAPINE
     Indication: Product used for unknown indication
     Dosage: UNK,1 TOTAL,(NP)
     Dates: start: 20250912, end: 20250912
  5. CYAMEMAZINE [Suspect]
     Active Substance: CYAMEMAZINE
     Indication: Product used for unknown indication
     Dosage: 52 MILLIGRAM, TOTAL,(1 TOTAL)
     Dates: start: 20250912, end: 20250912

REACTIONS (3)
  - Somnolence [Recovered/Resolved]
  - Hepatic cytolysis [Recovered/Resolved]
  - Poisoning deliberate [Recovered/Resolved]

NARRATIVE: CASE EVENT DATE: 20250912
